FAERS Safety Report 18528386 (Version 2)
Quarter: 2021Q2

REPORT INFORMATION
  Report Type: Other
  Country: JP (occurrence: JP)
  Receive Date: 20201120
  Receipt Date: 20210630
  Transmission Date: 20210717
  Serious: Yes (Other)
  Sender: FDA-Public Use
  Company Number: JP-ROCHE-2703468

PATIENT
  Age: 72 Year
  Sex: Male

DRUGS (1)
  1. LUCENTIS [Suspect]
     Active Substance: RANIBIZUMAB
     Indication: NEOVASCULAR AGE-RELATED MACULAR DEGENERATION
     Dosage: UNK, 20 DOSES HAVE BEEN ADMINISTERED SINCE 5 YEARS AGO.
     Route: 050
     Dates: start: 20160204, end: 20200303

REACTIONS (2)
  - Age-related macular degeneration [Unknown]
  - Disease recurrence [Unknown]
